FAERS Safety Report 13299935 (Version 2)
Quarter: 2020Q3

REPORT INFORMATION
  Report Type: Spontaneous
  Country: US (occurrence: US)
  Receive Date: 20170306
  Receipt Date: 20200915
  Transmission Date: 20201102
  Serious: No
  Sender: FDA-Public Use
  Company Number: US-PFIZER INC-2017091145

PATIENT
  Age: 62 Year
  Sex: Female

DRUGS (1)
  1. XELJANZ [Suspect]
     Active Substance: TOFACITINIB CITRATE
     Indication: PUSTULAR PSORIASIS
     Dosage: 5 MG

REACTIONS (4)
  - Hypertension [Unknown]
  - Product use in unapproved indication [Unknown]
  - Off label use [Unknown]
  - Blood cholesterol increased [Unknown]
